FAERS Safety Report 6337985-2 (Version None)
Quarter: 2009Q3

REPORT INFORMATION
  Report Type: 
  Country: None (occurrence: None)
  Receive Date: 20090902
  Receipt Date: 20090825
  Transmission Date: 20100115
  Serious: Yes (Death)
  Sender: FDA-Public Use
  Company Number: JP-BRISTOL-MYERS SQUIBB COMPANY-14553069

PATIENT
  Age: 56 Year
  Sex: Male

DRUGS (6)
  1. ABILIFY [Suspect]
     Indication: SCHIZOPHRENIA
     Dosage: TABS 6MG
     Route: 048
     Dates: start: 20070905, end: 20090309
  2. TANNALBIN [Concomitant]
     Dosage: POWDER
     Dates: start: 20090309, end: 20090309
  3. LAC-B [Concomitant]
     Dosage: POWDER
     Dates: start: 20090309, end: 20090309
  4. SILECE [Concomitant]
     Dosage: TABS
     Dates: end: 20090309
  5. DEPAKENE [Concomitant]
     Dosage: TABS
     Dates: end: 20090309
  6. EFFORTIL [Concomitant]
     Dosage: TABS
     Dates: end: 20090309

REACTIONS (2)
  - ASPHYXIA [None]
  - PNEUMONIA ASPIRATION [None]
